FAERS Safety Report 4536861-5 (Version None)
Quarter: 2004Q4

REPORT INFORMATION
  Report Type: 
  Country: None (occurrence: None)
  Receive Date: 20041223
  Receipt Date: 20040804
  Transmission Date: 20050328
  Serious: Yes (Other)
  Sender: FDA-Public Use
  Company Number: JP-GLAXOSMITHKLINE-B0341882A

PATIENT
  Age: 28 Year
  Sex: Male

DRUGS (6)
  1. EPIVIR [Suspect]
     Indication: ACQUIRED IMMUNODEFICIENCY SYNDROME
     Dosage: 150MG TWICE PER DAY
     Route: 048
     Dates: start: 20030601
  2. ZERIT [Suspect]
     Indication: ACQUIRED IMMUNODEFICIENCY SYNDROME
     Route: 048
     Dates: start: 20030601
  3. VIRACEPT [Suspect]
     Indication: ACQUIRED IMMUNODEFICIENCY SYNDROME
     Route: 048
     Dates: start: 20030601
  4. SAWACILLIN [Suspect]
     Indication: SYPHILIS
     Dosage: 250MG THREE TIMES PER DAY
     Route: 048
     Dates: start: 20030821, end: 20030917
  5. CYANOCOBALAMIN [Concomitant]
     Indication: HYPOAESTHESIA
     Dosage: 50MCG TWICE PER DAY
     Route: 065
     Dates: start: 20030601
  6. LOPEMIN [Concomitant]
     Indication: DIARRHOEA
     Dosage: 1MG TWICE PER DAY
     Route: 048
     Dates: start: 20030601

REACTIONS (5)
  - ALANINE AMINOTRANSFERASE INCREASED [None]
  - ASPARTATE AMINOTRANSFERASE INCREASED [None]
  - BLOOD ALKALINE PHOSPHATASE INCREASED [None]
  - BLOOD LACTATE DEHYDROGENASE INCREASED [None]
  - LIVER DISORDER [None]
